FAERS Safety Report 8275031-4 (Version None)
Quarter: 2012Q2

REPORT INFORMATION
  Report Type: 
  Country: None (occurrence: None)
  Receive Date: 20120411
  Receipt Date: 20120404
  Transmission Date: 20120825
  Serious: No
  Sender: FDA-Public Use
  Company Number: US-US-EMD SERONO, INC.-7122221

PATIENT
  Sex: Female
  Weight: 94 kg

DRUGS (7)
  1. ZOVIRAX [Concomitant]
     Indication: HERPES VIRUS INFECTION
     Route: 048
  2. TRAMADOL HCL [Concomitant]
     Indication: PAIN
  3. REBIF [Suspect]
     Indication: MULTIPLE SCLEROSIS
     Route: 058
     Dates: start: 20100823, end: 20120319
  4. BACLOFEN [Concomitant]
     Indication: MUSCLE SPASTICITY
     Route: 048
  5. OXYBUTYNIN [Concomitant]
     Indication: PRODUCT USED FOR UNKNOWN INDICATION
  6. ABILIFY [Concomitant]
     Indication: SCHIZOPHRENIA, PARANOID TYPE
  7. ATIVAN [Concomitant]
     Indication: PRODUCT USED FOR UNKNOWN INDICATION

REACTIONS (1)
  - MULTIPLE SCLEROSIS RELAPSE [None]
